FAERS Safety Report 4654362-0 (Version None)
Quarter: 2005Q2

REPORT INFORMATION
  Report Type: 
  Country: None (occurrence: None)
  Receive Date: 20050404
  Receipt Date: 20041229
  Transmission Date: 20051028
  Serious: No
  Sender: FDA-Public Use
  Company Number: USA041287107

PATIENT
  Age: 61 Year
  Sex: Female
  Weight: 57 kg

DRUGS (11)
  1. CYMBALTA [Suspect]
     Indication: NEUROPATHY
     Dosage: 60 MG AT BEDTIME
     Dates: start: 20041222
  2. COREG [Concomitant]
  3. LASIX [Concomitant]
  4. ALDACTONE [Concomitant]
  5. ASPIRIN [Concomitant]
  6. KLONOPIN [Concomitant]
  7. COLCHICINE [Concomitant]
  8. BEXTRA [Concomitant]
  9. VITAMIN [Concomitant]
  10. COD-LIVER OIL [Concomitant]
  11. MINERALRICH [Concomitant]

REACTIONS (2)
  - INCREASED APPETITE [None]
  - SOMNOLENCE [None]
